FAERS Safety Report 17229628 (Version 1)
Quarter: 2020Q1

REPORT INFORMATION
  Report Type: Spontaneous
  Country: SE (occurrence: SE)
  Receive Date: 20200103
  Receipt Date: 20200103
  Transmission Date: 20200409
  Serious: Yes (Hospitalization)
  Sender: FDA-Public Use
  Company Number: SE-MYLANLABS-2019M1131662

PATIENT
  Sex: Female

DRUGS (1)
  1. LERGIGAN FORTE 50 MG FILMDRAGERADE TABLETTER [Suspect]
     Active Substance: PROMETHAZINE HYDROCHLORIDE
     Indication: PRODUCT USED FOR UNKNOWN INDICATION
     Dosage: 1 DOSAGE FORM, TOTAL
     Route: 048
     Dates: start: 20180726, end: 20180726

REACTIONS (11)
  - Lethargy [Unknown]
  - Hallucination [Unknown]
  - Disorganised speech [Unknown]
  - Intentional overdose [Unknown]
  - Confusional state [Unknown]
  - Ocular hyperaemia [Unknown]
  - Psychomotor hyperactivity [Unknown]
  - Intentional self-injury [Unknown]
  - Mydriasis [Unknown]
  - Dysarthria [Unknown]
  - Depressed level of consciousness [Unknown]

NARRATIVE: CASE EVENT DATE: 20180726
